FAERS Safety Report 9424053 (Version 2)
Quarter: 2013Q3

REPORT INFORMATION
  Report Type: Spontaneous
  Country: US (occurrence: US)
  Receive Date: 20130729
  Receipt Date: 20130909
  Transmission Date: 20140515
  Serious: No
  Sender: FDA-Public Use
  Company Number: US-BIOGENIDEC-2013BI069107

PATIENT
  Sex: Female

DRUGS (1)
  1. TYSABRI [Suspect]
     Indication: MULTIPLE SCLEROSIS
     Route: 042
     Dates: start: 20120621

REACTIONS (12)
  - Vision blurred [Unknown]
  - Muscle spasms [Unknown]
  - Abdominal pain upper [Unknown]
  - Thinking abnormal [Unknown]
  - Paraesthesia [Unknown]
  - Hyperventilation [Unknown]
  - Ear disorder [Not Recovered/Not Resolved]
  - Pyrexia [Not Recovered/Not Resolved]
  - Asthenia [Unknown]
  - Hypotension [Unknown]
  - Dyspnoea [Unknown]
  - Urinary tract infection [Not Recovered/Not Resolved]
